FAERS Safety Report 23345667 (Version 1)
Quarter: 2023Q4

REPORT INFORMATION
  Report Type: Spontaneous
  Country: CN (occurrence: CN)
  Receive Date: 20231228
  Receipt Date: 20231228
  Transmission Date: 20240109
  Serious: Yes (Hospitalization)
  Sender: FDA-Public Use
  Company Number: CN-ROCHE-3214333

PATIENT
  Age: 72 Year
  Sex: Male
  Weight: 80.9 kg

DRUGS (15)
  1. CAPECITABINE [Suspect]
     Active Substance: CAPECITABINE
     Indication: Metastatic gastric cancer
     Dosage: (...) ORAL CAPECITABINE (LOT NUMBER: SH2861) 3500 MG TWICE A DAY?ON 29/OCT/2022, HE RECEIVED MOS...
     Route: 048
     Dates: start: 20220719
  2. ATEZOLIZUMAB [Suspect]
     Active Substance: ATEZOLIZUMAB
     Indication: Metastatic gastric cancer
     Dosage: DOSE LAST STUDY DRUG ADMIN PRIOR AE: 1200V MG??START DATE OF MOST RECENT DOSE OF STUDY DRUG PRIO...
     Route: 042
     Dates: start: 20220719
  3. TIRAGOLUMAB [Suspect]
     Active Substance: TIRAGOLUMAB
     Indication: Metastatic gastric cancer
     Dosage: DOSE LAST STUDY DRUG ADMIN PRIOR AE: 600MG??START DATE OF MOST RECENT DOSE OF STUDY DRUG PRIOR T...
     Route: 042
     Dates: start: 20220719
  4. OXALIPLATIN [Suspect]
     Active Substance: OXALIPLATIN
     Indication: Metastatic gastric cancer
     Dosage: DOSE LAST STUDY DRUG ADMIN PRIOR AE: 185 MG?START DATE OF MOST RECENT DOSE OF STUDY DRUG PRIOR TO A
     Route: 042
     Dates: start: 20220719
  5. INSULIN ASPART [Concomitant]
     Active Substance: INSULIN ASPART
     Indication: Diabetes mellitus
     Dates: start: 2000
  6. REPAGLINIDE [Concomitant]
     Active Substance: REPAGLINIDE
     Indication: Diabetes mellitus
     Dates: start: 2000
  7. DILTIAZEM HYDROCHLORIDE [Concomitant]
     Active Substance: DILTIAZEM HYDROCHLORIDE
     Dates: start: 2012
  8. ATORVASTATIN CALCIUM [Concomitant]
     Active Substance: ATORVASTATIN CALCIUM
     Dates: start: 2012
  9. ESCITALOPRAM OXALATE [Concomitant]
     Active Substance: ESCITALOPRAM OXALATE
     Indication: Anxiety disorder
     Dates: start: 2019
  10. TRAZODONE HYDROCHLORIDE [Concomitant]
     Active Substance: TRAZODONE HYDROCHLORIDE
     Indication: Anxiety disorder
     Dates: start: 2019
  11. THROMBOPOIETIN [Concomitant]
     Active Substance: THROMBOPOIETIN
     Indication: Thrombocytopenia
     Dosage: 1.5 OTHER
     Route: 058
     Dates: start: 20220921, end: 20221007
  12. VITAMIN B6 [Concomitant]
     Active Substance: PYRIDOXINE HYDROCHLORIDE
     Route: 048
     Dates: start: 20221020, end: 20221020
  13. OMEPRAZOLE SODIUM [Concomitant]
     Active Substance: OMEPRAZOLE SODIUM
     Route: 042
     Dates: start: 20221020, end: 20221021
  14. GRANISETRON HYDROCHLORIDE [Concomitant]
     Active Substance: GRANISETRON HYDROCHLORIDE
     Route: 042
     Dates: start: 20221020, end: 20221021
  15. METOCLOPRAMIDE HYDROCHLORIDE [Concomitant]
     Active Substance: METOCLOPRAMIDE HYDROCHLORIDE
     Route: 042
     Dates: start: 20221020, end: 20221021

REACTIONS (1)
  - Cholecystitis acute [Recovered/Resolved]

NARRATIVE: CASE EVENT DATE: 20221029
